FAERS Safety Report 6274026-X (Version None)
Quarter: 2009Q3

REPORT INFORMATION
  Report Type: 
  Country: None (occurrence: None)
  Receive Date: 20090720
  Receipt Date: 20090708
  Transmission Date: 20100115
  Serious: Yes (Other)
  Sender: FDA-Public Use
  Company Number: DE-ELI_LILLY_AND_COMPANY-DE200905000901

PATIENT

DRUGS (3)
  1. STRATTERA [Suspect]
     Indication: ATTENTION DEFICIT/HYPERACTIVITY DISORDER
     Dosage: UNK, UNKNOWN
  2. STRATTERA [Suspect]
     Dosage: 18 MG, DAILY (1/D)
     Route: 048
     Dates: start: 20060101
  3. IBUPROFEN [Concomitant]
     Dosage: UNK, AS NEEDED
     Route: 065

REACTIONS (5)
  - ABDOMINAL PAIN [None]
  - AGGRESSION [None]
  - HYPERTENSION [None]
  - RENAL ARTERY STENOSIS [None]
  - TACHYCARDIA [None]
